FAERS Safety Report 7373780-3 (Version None)
Quarter: 2011Q1

REPORT INFORMATION
  Report Type: 
  Country: None (occurrence: None)
  Receive Date: 20110315
  Receipt Date: 20110307
  Transmission Date: 20110831
  Serious: Yes (Other)
  Sender: FDA-Public Use
  Company Number: 2011SP010560

PATIENT
  Age: 31 Year
  Sex: Male

DRUGS (6)
  1. REFLEX (MIRTAZAPINE /01293201/) [Suspect]
     Indication: DEPRESSION
     Dosage: 15 MG;QD;PO
     Route: 048
     Dates: start: 20100716, end: 20100730
  2. PAROXETINE HCL [Concomitant]
  3. PAROXETINE HCL [Concomitant]
  4. HYDROCHLORIDE HYDRATE [Concomitant]
  5. SULPRIDE [Concomitant]
  6. HYDROCHLORIDE HYDRATES [Concomitant]

REACTIONS (4)
  - ECONOMIC PROBLEM [None]
  - ANXIETY [None]
  - INTENTIONAL SELF-INJURY [None]
  - STRESS [None]
